FAERS Safety Report 22300093 (Version 1)
Quarter: 2023Q2

REPORT INFORMATION
  Report Type: Spontaneous
  Country: BG (occurrence: BG)
  Receive Date: 20230509
  Receipt Date: 20230509
  Transmission Date: 20230721
  Serious: Yes (Other)
  Sender: FDA-Public Use
  Company Number: BG-009507513-2305BGR002403

PATIENT
  Age: 52 Year
  Sex: Male

DRUGS (4)
  1. KEYTRUDA [Suspect]
     Active Substance: PEMBROLIZUMAB
     Indication: Lung adenocarcinoma stage III
     Dosage: 200 MILLIGRAM, Q3W
     Dates: start: 2021
  2. CISPLATIN [Suspect]
     Active Substance: CISPLATIN
     Indication: Lung adenocarcinoma stage III
     Dosage: 75 MILLIGRAM/SQ. METER
     Dates: start: 2021
  3. CISPLATIN [Suspect]
     Active Substance: CISPLATIN
     Dosage: AUC = 5
  4. PEMETREXED [Suspect]
     Active Substance: PEMETREXED
     Indication: Lung adenocarcinoma stage III
     Dosage: 500 MILLIGRAM/SQ. METER

REACTIONS (5)
  - Malignant neoplasm oligoprogression [Unknown]
  - Cholangitis [Unknown]
  - Blood creatinine increased [Unknown]
  - Lymphadenopathy [Unknown]
  - Drug level increased [Unknown]

NARRATIVE: CASE EVENT DATE: 20210801
